FAERS Safety Report 9803583 (Version 1)
Quarter: 2014Q1

REPORT INFORMATION
  Report Type: Spontaneous
  Country: US (occurrence: None)
  Receive Date: 20140103
  Receipt Date: 20140103
  Transmission Date: 20141002
  Serious: Yes (Other)
  Sender: FDA-Public Use
  Company Number: 2013P1022293

PATIENT
  Age: 56 Year
  Sex: Female

DRUGS (3)
  1. HYDROCHLOROTHIAZIDE [Suspect]
     Indication: HYPERCALCIURIA
  2. VITAMIN D [Concomitant]
  3. CALCIUM SUPPLEMENTS [Concomitant]

REACTIONS (1)
  - Mycosis fungoides [None]
